FAERS Safety Report 18562581 (Version 1)
Quarter: 2020Q4

REPORT INFORMATION
  Report Type: Spontaneous
  Country: US (occurrence: US)
  Receive Date: 20201130
  Receipt Date: 20201130
  Transmission Date: 20210114
  Serious: No
  Sender: FDA-Public Use
  Company Number: US-ROCHE-2508447

PATIENT
  Sex: Female

DRUGS (1)
  1. LUCENTIS [Suspect]
     Active Substance: RANIBIZUMAB
     Indication: DIABETES MELLITUS
     Dosage: ONGOING:UNKNOWN
     Route: 031
     Dates: end: 20191219

REACTIONS (4)
  - Off label use [Unknown]
  - Eye pruritus [Unknown]
  - Intentional product use issue [Unknown]
  - Ocular hyperaemia [Unknown]
